FAERS Safety Report 6859508-1 (Version None)
Quarter: 2010Q3

REPORT INFORMATION
  Report Type: 
  Country: None (occurrence: None)
  Receive Date: 20100719
  Receipt Date: 20080304
  Transmission Date: 20110219
  Serious: No
  Sender: FDA-Public Use
  Company Number: US-PFIZER INC-2008020784

PATIENT
  Sex: Female
  Weight: 68.5 kg

DRUGS (5)
  1. CHANTIX [Suspect]
     Indication: SMOKING CESSATION THERAPY
     Dates: start: 20080218
  2. ACTONEL [Concomitant]
     Indication: OSTEOPOROSIS
  3. TEGRETOL [Concomitant]
     Indication: TRIGEMINAL NEURALGIA
     Dosage: 7 EVERY 1 DAYS
  4. LISINOPRIL [Concomitant]
     Indication: HYPERTENSION
  5. LIPITOR [Concomitant]
     Indication: BLOOD CHOLESTEROL INCREASED

REACTIONS (1)
  - NAUSEA [None]
